FAERS Safety Report 17108605 (Version 1)
Quarter: 2019Q4

REPORT INFORMATION
  Report Type: Report from Study
  Country: None (occurrence: US)
  Receive Date: 20191204
  Receipt Date: 20191204
  Transmission Date: 20200122
  Serious: Yes (Death, Other)
  Sender: FDA-Public Use
  Company Number: US-ABBVIE-19K-163-3179725-00

PATIENT
  Sex: Female

DRUGS (1)
  1. CREON [Suspect]
     Active Substance: PANCRELIPASE AMYLASE\PANCRELIPASE LIPASE\PANCRELIPASE PROTEASE
     Indication: PANCREATECTOMY
     Dosage: 1 CAPSULE WITH EACH MEAL
     Route: 048
     Dates: start: 2018

REACTIONS (2)
  - Ovarian cancer stage IV [Fatal]
  - Malignant ascites [Not Recovered/Not Resolved]

NARRATIVE: CASE EVENT DATE: 2019
